FAERS Safety Report 9264330 (Version 1)
Quarter: 2013Q2

REPORT INFORMATION
  Report Type: Report from Study
  Country: DE (occurrence: DE)
  Receive Date: 20130430
  Receipt Date: 20130430
  Transmission Date: 20140414
  Serious: Yes (Death, Other)
  Sender: FDA-Public Use
  Company Number: DE-ABBOTT-13P-062-1077848-00

PATIENT
  Age: 73 Year
  Sex: Male

DRUGS (3)
  1. TRENANTONE [Suspect]
     Indication: PROSTATE CANCER
     Route: 058
     Dates: start: 20120730, end: 20130114
  2. TRENANTONE [Suspect]
     Indication: RADICAL PROSTATECTOMY
  3. BICALUTAMID [Concomitant]
     Indication: ANTIANDROGEN THERAPY
     Dosage: 150MG, UNKNOWN
     Dates: start: 20121022

REACTIONS (6)
  - Prostate cancer [Fatal]
  - Haemoglobin decreased [Unknown]
  - Blood lactate dehydrogenase increased [Unknown]
  - Aspartate aminotransferase increased [Unknown]
  - Blood alkaline phosphatase increased [Unknown]
  - Blood creatinine increased [Unknown]
